FAERS Safety Report 11303482 (Version 1)
Quarter: 2015Q3

REPORT INFORMATION
  Report Type: Spontaneous
  Country: US (occurrence: US)
  Receive Date: 20150723
  Receipt Date: 20150723
  Transmission Date: 20151125
  Serious: No
  Sender: FDA-Public Use
  Company Number: US-JNJFOC-20140906640

PATIENT
  Age: 71 Year
  Sex: Male
  Weight: 74.84 kg

DRUGS (2)
  1. ZYRTEC [Suspect]
     Active Substance: CETIRIZINE HYDROCHLORIDE
     Indication: MULTIPLE ALLERGIES
     Dosage: 1 DISSOLVE TABS; ONCE.
     Route: 048
     Dates: start: 20140831
  2. ZYRTEC [Suspect]
     Active Substance: CETIRIZINE HYDROCHLORIDE
     Indication: PRURITUS
     Dosage: 1 DISSOLVE TABS; ONCE.
     Route: 048
     Dates: start: 20140831

REACTIONS (2)
  - Drug ineffective for unapproved indication [Unknown]
  - Dysgeusia [Unknown]
